FAERS Safety Report 23360767 (Version 1)
Quarter: 2024Q1

REPORT INFORMATION
  Report Type: Spontaneous
  Country: SK (occurrence: SK)
  Receive Date: 20240103
  Receipt Date: 20240103
  Transmission Date: 20240409
  Serious: Yes (Other)
  Sender: FDA-Public Use
  Company Number: None

PATIENT
  Age: 25 Year
  Sex: Female

DRUGS (8)
  1. BRIVARACETAM [Suspect]
     Active Substance: BRIVARACETAM
     Indication: Epilepsy
     Dosage: 200 MILLIGRAM PER DAY
  2. BRIVARACETAM [Suspect]
     Active Substance: BRIVARACETAM
     Indication: Focal dyscognitive seizures
  3. LACOSAMIDE [Suspect]
     Active Substance: LACOSAMIDE
     Indication: Focal dyscognitive seizures
     Dosage: UNK
  4. LACOSAMIDE [Suspect]
     Active Substance: LACOSAMIDE
     Indication: Epilepsy
  5. VALPROATE [Suspect]
     Active Substance: VALPROIC ACID
     Indication: Focal dyscognitive seizures
     Dosage: 500 MILLIGRAM PER DAY
  6. VALPROATE [Suspect]
     Active Substance: VALPROIC ACID
     Indication: Epilepsy
  7. LAMOTRIGINE [Suspect]
     Active Substance: LAMOTRIGINE
     Indication: Epilepsy
     Dosage: 200 MILLIGRAM PER DAY
  8. LAMOTRIGINE [Suspect]
     Active Substance: LAMOTRIGINE
     Indication: Focal dyscognitive seizures

REACTIONS (4)
  - Epilepsy [Unknown]
  - Rash [Unknown]
  - Tremor [Unknown]
  - Gastrointestinal disorder [Unknown]
